FAERS Safety Report 7250700-3 (Version None)
Quarter: 2011Q1

REPORT INFORMATION
  Report Type: 
  Country: None (occurrence: None)
  Receive Date: 20110128
  Receipt Date: 20110126
  Transmission Date: 20110831
  Serious: Yes (Other)
  Sender: FDA-Public Use
  Company Number: PHHO2010PL15961

PATIENT
  Sex: Male
  Weight: 70.6 kg

DRUGS (2)
  1. FTY 720 [Suspect]
     Indication: MULTIPLE SCLEROSIS
     Dosage: DOUBLE BLIND
     Route: 048
     Dates: start: 20090706
  2. FTY [Suspect]
     Indication: MULTIPLE SCLEROSIS
     Dosage: 0.5MG
     Route: 048
     Dates: start: 20100330, end: 20101020

REACTIONS (3)
  - CONCOMITANT DISEASE PROGRESSION [None]
  - SKIN NEOPLASM EXCISION [None]
  - BASAL CELL CARCINOMA [None]
